FAERS Safety Report 8539743-7 (Version None)
Quarter: 2012Q3

REPORT INFORMATION
  Report Type: 
  Country: None (occurrence: None)
  Receive Date: 20120726
  Receipt Date: 20110920
  Transmission Date: 20120928
  Serious: No
  Sender: FDA-Public Use
  Company Number: US-ASTRAZENECA-2009SE06103

PATIENT
  Age: 37 Year
  Sex: Female

DRUGS (4)
  1. SEROQUEL XR [Suspect]
     Indication: SLEEP DISORDER
     Route: 048
     Dates: start: 20090501
  2. SEROQUEL XR [Suspect]
     Route: 048
     Dates: start: 20090501
  3. SEROQUEL XR [Suspect]
     Route: 048
  4. SEROQUEL XR [Suspect]
     Route: 048

REACTIONS (7)
  - LETHARGY [None]
  - INSOMNIA [None]
  - NECK INJURY [None]
  - BRUXISM [None]
  - TINNITUS [None]
  - ROAD TRAFFIC ACCIDENT [None]
  - GASTROINTESTINAL PAIN [None]
